FAERS Safety Report 7357658-7 (Version None)
Quarter: 2011Q1

REPORT INFORMATION
  Report Type: 
  Country: None (occurrence: None)
  Receive Date: 20110317
  Receipt Date: 20110307
  Transmission Date: 20110831
  Serious: Yes (Hospitalization)
  Sender: FDA-Public Use
  Company Number: US-ELI_LILLY_AND_COMPANY-US200908004156

PATIENT
  Sex: Female

DRUGS (21)
  1. FORTEO [Suspect]
     Dosage: 20 UG, DAILY (1/D)
  2. LEVOTHYROXINE [Concomitant]
  3. ZYRTEC [Concomitant]
  4. EFFEXOR [Concomitant]
  5. METOPROLOL [Concomitant]
  6. ALLEGRA [Concomitant]
  7. MAGNESIUM [Concomitant]
  8. LOVAZA [Concomitant]
  9. CENTRUM SILVER [Concomitant]
  10. FORTEO [Suspect]
     Dosage: 20 UG, DAILY (1/D)
  11. DIGOXIN [Concomitant]
  12. DILTIAZEM [Concomitant]
  13. DOXEPIN [Concomitant]
  14. HYDROCHLOROTHIAZIDE [Concomitant]
  15. POTASSIUM [Concomitant]
  16. CITRICAL [Concomitant]
  17. COUMADIN [Concomitant]
  18. CALCIUM [Concomitant]
  19. VITAMIN D [Concomitant]
  20. FORTEO [Suspect]
     Indication: OSTEOPOROSIS
     Dosage: 20 UG, DAILY (1/D)
     Dates: start: 20090101, end: 20090815
  21. VYTORIN [Concomitant]

REACTIONS (8)
  - PAIN IN JAW [None]
  - CARDIAC DISORDER [None]
  - CHEST PAIN [None]
  - SWOLLEN TONGUE [None]
  - DRUG HYPERSENSITIVITY [None]
  - NAUSEA [None]
  - NECK PAIN [None]
  - PHARYNGEAL OEDEMA [None]
